FAERS Safety Report 9394844 (Version 1)
Quarter: 2013Q3

REPORT INFORMATION
  Report Type: Spontaneous
  Country: US (occurrence: US)
  Receive Date: 20130711
  Receipt Date: 20130711
  Transmission Date: 20140515
  Serious: Yes (Other)
  Sender: FDA-Public Use
  Company Number: US-JNJFOC-20130607204

PATIENT
  Age: 58 Year
  Sex: Male
  Weight: 113.58 kg

DRUGS (10)
  1. INVOKANA [Suspect]
     Indication: TYPE 2 DIABETES MELLITUS
     Dosage: TOOK 2 DAYS, WITHHELD 2 DAYS, TRIED AGAIN
     Route: 048
     Dates: start: 20130513, end: 20130518
  2. LOSARTAN POTASSIUM [Concomitant]
     Indication: HYPERTENSION
     Route: 048
  3. ZOLPIDEM [Concomitant]
  4. LANTUS INSULIN [Concomitant]
  5. NOVOLOG [Concomitant]
     Dosage: WITH EACH MEAL
  6. BYSTOLIC [Concomitant]
  7. VENTOLIN HFA [Concomitant]
  8. FLOVENT [Concomitant]
  9. VITAMIN D [Concomitant]
  10. OXYCONTIN [Concomitant]

REACTIONS (1)
  - Presyncope [Recovered/Resolved]
